FAERS Safety Report 8138636-7 (Version None)
Quarter: 2012Q1

REPORT INFORMATION
  Report Type: 
  Country: None (occurrence: None)
  Receive Date: 20120215
  Receipt Date: 20120126
  Transmission Date: 20120608
  Serious: Yes (Hospitalization)
  Sender: FDA-Public Use
  Company Number: BR-GLAXOSMITHKLINE-A0964080A

PATIENT
  Sex: Female
  Weight: 80 kg

DRUGS (11)
  1. DIOVAN HCT [Concomitant]
     Indication: HYPERTENSION
  2. NICORETTE [Suspect]
     Indication: SMOKING CESSATION THERAPY
     Dosage: 6GUM PER DAY
     Route: 002
     Dates: start: 20070101
  3. GLUCOCORTICOID [Concomitant]
     Indication: ARTHRITIS
  4. ARAVA [Concomitant]
     Indication: ARTHRITIS
  5. NEXIUM [Concomitant]
     Indication: GASTRIC DISORDER
  6. CRESTOR [Concomitant]
     Indication: BLOOD CHOLESTEROL INCREASED
  7. DAFLON [Concomitant]
     Indication: CARDIOVASCULAR DISORDER
  8. SYNTHROID [Concomitant]
     Indication: THYROID DISORDER
  9. PROCORALAN [Concomitant]
     Indication: ARRHYTHMIA
  10. OMEGA 3-6-9 [Concomitant]
     Indication: BLOOD CHOLESTEROL INCREASED
  11. BONIVA [Concomitant]
     Indication: OSTEOPOROSIS

REACTIONS (4)
  - INTENTIONAL DRUG MISUSE [None]
  - COUGH [None]
  - NICOTINE DEPENDENCE [None]
  - ADVERSE EVENT [None]
